FAERS Safety Report 14225995 (Version 1)
Quarter: 2017Q4

REPORT INFORMATION
  Report Type: Spontaneous
  Country: US (occurrence: US)
  Receive Date: 20171127
  Receipt Date: 20171127
  Transmission Date: 20180321
  Serious: No
  Sender: FDA-Public Use
  Company Number: US-TEVA-814616ACC

PATIENT
  Sex: Female

DRUGS (1)
  1. BUPROPION HYDROCHLORIDE SUSTAINED RELEASE [Suspect]
     Active Substance: BUPROPION HYDROCHLORIDE
     Dates: start: 20170803

REACTIONS (5)
  - Crying [Unknown]
  - Hormone level abnormal [Unknown]
  - Feeling abnormal [Unknown]
  - Anxiety [Unknown]
  - Depression [Unknown]
